FAERS Safety Report 9698972 (Version 2)
Quarter: 2013Q4

REPORT INFORMATION
  Report Type: Spontaneous
  Country: IN (occurrence: IN)
  Receive Date: 20131120
  Receipt Date: 20131227
  Transmission Date: 20140711
  Serious: Yes (Hospitalization)
  Sender: FDA-Public Use
  Company Number: IN-ELI_LILLY_AND_COMPANY-IN201311003609

PATIENT
  Sex: 0

DRUGS (1)
  1. GEMCITE [Suspect]
     Indication: HEAD AND NECK CANCER
     Dosage: 200 MG, UNK
     Route: 042

REACTIONS (2)
  - Leukocytosis [Recovered/Resolved]
  - Off label use [Unknown]
